FAERS Safety Report 7070199-X (Version None)
Quarter: 2010Q4

REPORT INFORMATION
  Report Type: 
  Country: None (occurrence: None)
  Receive Date: 20101028
  Receipt Date: 20100924
  Transmission Date: 20110411
  Serious: No
  Sender: FDA-Public Use
  Company Number: US-WYE-H17763410

PATIENT
  Sex: Female

DRUGS (1)
  1. ADVIL [Suspect]

REACTIONS (1)
  - URTICARIA [None]
